FAERS Safety Report 16597048 (Version 1)
Quarter: 2019Q3

REPORT INFORMATION
  Report Type: Spontaneous
  Country: US (occurrence: US)
  Receive Date: 20190606
  Receipt Date: 20190606
  Transmission Date: 20191004
  Serious: No
  Sender: FDA-Public Use
  Company Number: None

PATIENT
  Age: 34 Year
  Sex: Female

DRUGS (1)
  1. HUMIRA [Suspect]
     Active Substance: ADALIMUMAB
     Indication: POLYARTHRITIS
     Dosage: 40MG 1 PEN EVERY 2 WKS INJECT
     Dates: start: 20181228, end: 20190515

REACTIONS (1)
  - Furuncle [None]

NARRATIVE: CASE EVENT DATE: 20190515
